FAERS Safety Report 5766330-6 (Version None)
Quarter: 2008Q2

REPORT INFORMATION
  Report Type: 
  Country: None (occurrence: None)
  Receive Date: 20080605
  Receipt Date: 20080521
  Transmission Date: 20081010
  Serious: Yes (Hospitalization, Other)
  Sender: FDA-Public Use
  Company Number: 2008S10008871

PATIENT
  Age: 70 Year
  Sex: Male

DRUGS (5)
  1. ERYTHROMYCIN STEARATE [Suspect]
     Indication: ROSACEA
     Dosage: 500 MG; TWICE A DAY; ORAL
     Route: 048
     Dates: start: 19940101, end: 20060101
  2. BETAHISTINE (CON.) [Concomitant]
  3. FINASTERIDE (CON.) [Concomitant]
  4. IPRATROPIUM (CON.) [Concomitant]
  5. SALBUTAMOL (CON.) [Concomitant]

REACTIONS (4)
  - CHOKING [None]
  - COUGH [None]
  - LOWER RESPIRATORY TRACT INFECTION [None]
  - LUNG DISORDER [None]
